FAERS Safety Report 7338732-8 (Version None)
Quarter: 2011Q1

REPORT INFORMATION
  Report Type: 
  Country: None (occurrence: None)
  Receive Date: 20110308
  Receipt Date: 20110223
  Transmission Date: 20110831
  Serious: Yes (Hospitalization)
  Sender: FDA-Public Use
  Company Number: B0703896A

PATIENT
  Sex: Male

DRUGS (7)
  1. FOLIC ACID [Concomitant]
     Route: 048
  2. TRAMADOL [Concomitant]
     Route: 048
  3. CHLORAMBUCIL [Suspect]
     Dates: start: 20100720, end: 20101102
  4. ASPIRIN [Concomitant]
     Indication: SUPRAVENTRICULAR TACHYCARDIA
     Route: 048
  5. ALLOPURINOL [Concomitant]
     Indication: PROPHYLAXIS
     Route: 048
  6. METOPROLOL [Concomitant]
     Indication: SUPRAVENTRICULAR TACHYCARDIA
     Route: 048
  7. PROCHLORPERAZINE [Concomitant]
     Route: 048

REACTIONS (4)
  - ANAEMIA [None]
  - ANAEMIA HAEMOLYTIC AUTOIMMUNE [None]
  - ABDOMINAL PAIN UPPER [None]
  - URINARY TRACT INFECTION [None]
